FAERS Safety Report 6369701-2 (Version None)
Quarter: 2009Q3

REPORT INFORMATION
  Report Type: 
  Country: None (occurrence: None)
  Receive Date: 20090923
  Receipt Date: 20090910
  Transmission Date: 20100115
  Serious: Yes (Other)
  Sender: FDA-Public Use
  Company Number: US-PFIZER INC-001-0073-M0100001

PATIENT
  Sex: Male

DRUGS (1)
  1. DILANTIN-125 [Suspect]
     Dosage: UNK
     Route: 065
     Dates: start: 19920101

REACTIONS (3)
  - ARTHRALGIA [None]
  - CONVULSION [None]
  - HERPES SIMPLEX [None]
